FAERS Safety Report 13683271 (Version 1)
Quarter: 2017Q2

REPORT INFORMATION
  Report Type: Spontaneous
  Country: JP (occurrence: JP)
  Receive Date: 20170623
  Receipt Date: 20170623
  Transmission Date: 20170830
  Serious: Yes (Death)
  Sender: FDA-Public Use
  Company Number: JP-PFIZER INC-2017273467

PATIENT
  Age: 71 Year
  Sex: Male

DRUGS (4)
  1. VFEND [Suspect]
     Active Substance: VORICONAZOLE
     Dosage: 3 MG/KG, UNK
     Route: 041
  2. MINOMYCIN [Concomitant]
     Active Substance: MINOCYCLINE HYDROCHLORIDE
     Dosage: UNK
     Route: 041
  3. VFEND [Suspect]
     Active Substance: VORICONAZOLE
     Indication: PULMONARY MYCOSIS
     Dosage: UNK
     Route: 041
  4. MEROPEN /01250501/ [Concomitant]
     Active Substance: MEROPENEM
     Dosage: UNK
     Route: 041

REACTIONS (4)
  - Asphyxia [Fatal]
  - C-reactive protein increased [Unknown]
  - Drug level increased [Unknown]
  - Pyrexia [Recovering/Resolving]
